FAERS Safety Report 8007530-4 (Version None)
Quarter: 2011Q4

REPORT INFORMATION
  Report Type: 
  Country: None (occurrence: None)
  Receive Date: 20111227
  Receipt Date: 20111216
  Transmission Date: 20120403
  Serious: Yes (Hospitalization)
  Sender: FDA-Public Use
  Company Number: US-BAYER-2011-099086

PATIENT
  Age: 35 Year
  Sex: Female
  Weight: 66 kg

DRUGS (7)
  1. MOTRIN [Concomitant]
     Indication: PAIN
     Dosage: 800 MG, UNK
     Route: 048
     Dates: start: 20091031
  2. LEXAPRO [Concomitant]
     Indication: PANIC ATTACK
     Dosage: UNK
     Dates: start: 20080101
  3. MULTI-VITAMIN [Concomitant]
     Indication: SUPPLEMENTATION THERAPY
     Dosage: UNK UNK, QD
  4. ANTIBIOTICS [Concomitant]
  5. CEFTIN [Concomitant]
     Indication: SINUSITIS
  6. VICODIN [Concomitant]
     Indication: PAIN
     Dosage: UNK
     Route: 048
     Dates: start: 20091031
  7. YAZ [Suspect]
     Indication: CONTRACEPTION
     Dosage: UNK
     Dates: start: 20091108, end: 20091119

REACTIONS (1)
  - PULMONARY EMBOLISM [None]
